FAERS Safety Report 14525018 (Version 1)
Quarter: 2018Q1

REPORT INFORMATION
  Report Type: Spontaneous
  Country: CA (occurrence: CA)
  Receive Date: 20180213
  Receipt Date: 20180213
  Transmission Date: 20180509
  Serious: Yes (Hospitalization)
  Sender: FDA-Public Use
  Company Number: CA-TEVA-2018-CA-857455

PATIENT
  Age: 57 Year
  Sex: Female
  Weight: 52 kg

DRUGS (14)
  1. CYMBALTA [Concomitant]
     Active Substance: DULOXETINE HYDROCHLORIDE
  2. PALAFER [Concomitant]
     Active Substance: FERROUS FUMARATE
  3. VENTOLIN HFA [Concomitant]
     Active Substance: ALBUTEROL SULFATE
     Dosage: METERED-DOSE (AEROSOL)
  4. ALENDRONATE [Suspect]
     Active Substance: ALENDRONATE SODIUM
     Indication: OSTEOPOROSIS
     Route: 048
  5. ASPIRIN 81MG [Concomitant]
     Active Substance: ASPIRIN
  6. ANUSOL-HC OINTMENT [Concomitant]
  7. CALCIUM CARBONATE. [Concomitant]
     Active Substance: CALCIUM CARBONATE
  8. GLICLAZIDE [Concomitant]
     Active Substance: GLICLAZIDE
  9. NADOLOL. [Concomitant]
     Active Substance: NADOLOL
  10. SENNA [Concomitant]
     Active Substance: SENNA LEAF\SENNOSIDES\SENNOSIDES A AND B
  11. PARIET, ENTERICCOATED TABLET 20MG [Concomitant]
  12. METFORMIN [Concomitant]
     Active Substance: METFORMIN HYDROCHLORIDE
  13. PREDNISONE. [Concomitant]
     Active Substance: PREDNISONE
  14. VITAMIN D [Concomitant]
     Active Substance: CHOLECALCIFEROL

REACTIONS (4)
  - Humerus fracture [Recovering/Resolving]
  - Open reduction of fracture [Recovering/Resolving]
  - Intramedullary rod insertion [Recovering/Resolving]
  - Atypical femur fracture [Recovering/Resolving]
